FAERS Safety Report 8935739 (Version 1)
Quarter: 2012Q4

REPORT INFORMATION
  Report Type: 
  Country: US (occurrence: US)
  Receive Date: 20121130
  Receipt Date: 20121130
  Transmission Date: 20130627
  Serious: Yes (Hospitalization)
  Sender: FDA-Public Use
  Company Number: US-GENZYME-CAMP-1002585

PATIENT
  Age: 82 Year
  Sex: Male
  Weight: 95.1 kg

DRUGS (1)
  1. CAMPATH [Suspect]
     Indication: CHRONIC LYMPHOCYTIC LEUKAEMIA
     Dosage: 30 mg, 3x/w
     Route: 058
     Dates: start: 20120514, end: 20121107

REACTIONS (2)
  - Cytomegalovirus mucocutaneous ulcer [Recovered/Resolved]
  - Gastrointestinal haemorrhage [Recovered/Resolved]
